FAERS Safety Report 5154446-7 (Version None)
Quarter: 2006Q4

REPORT INFORMATION
  Report Type: 
  Country: None (occurrence: None)
  Receive Date: 20061114
  Receipt Date: 20061101
  Transmission Date: 20070319
  Serious: Yes (Other)
  Sender: FDA-Public Use
  Company Number: 2006137003

PATIENT
  Age: 76 Year
  Sex: Male

DRUGS (4)
  1. DEPO-MEDROL [Suspect]
     Indication: GASTROINTESTINAL MOTILITY DISORDER
     Dosage: 2 ML (1 ML, 2 IN 1 D), RECTAL
     Route: 054
     Dates: start: 20060101, end: 20060101
  2. DEPO-MEDROL [Suspect]
     Indication: RECTAL HAEMORRHAGE
     Dosage: 2 ML (1 ML, 2 IN 1 D), RECTAL
     Route: 054
     Dates: start: 20060101, end: 20060101
  3. BALCOR (DILTIAZEM HYDROCHLORIDE) [Concomitant]
  4. CLONAZEPAM [Concomitant]

REACTIONS (5)
  - CONDITION AGGRAVATED [None]
  - GASTROINTESTINAL DISORDER [None]
  - PROSTATE CANCER [None]
  - RADIATION SKIN INJURY [None]
  - RECTAL HAEMORRHAGE [None]
